FAERS Safety Report 10069315 (Version 1)
Quarter: 2014Q2

REPORT INFORMATION
  Report Type: Spontaneous
  Country: US (occurrence: US)
  Receive Date: 20140409
  Receipt Date: 20140409
  Transmission Date: 20141212
  Serious: Yes (Other)
  Sender: FDA-Public Use
  Company Number: US-ENDO PHARMACEUTICALS INC.-FORT20140089

PATIENT
  Sex: Male

DRUGS (1)
  1. FORTESTA [Suspect]
     Indication: PRODUCT USED FOR UNKNOWN INDICATION
     Dosage: UNKNOWN
     Route: 061

REACTIONS (10)
  - Cerebrovascular accident [Unknown]
  - Myocardial infarction [Unknown]
  - Cardiac disorder [Unknown]
  - Thrombosis [Unknown]
  - Hypertension [Unknown]
  - Blood urine present [Unknown]
  - Middle insomnia [Unknown]
  - Sleep apnoea syndrome [Unknown]
  - Joint swelling [Unknown]
  - Gynaecomastia [Unknown]
